FAERS Safety Report 10532013 (Version 3)
Quarter: 2015Q3

REPORT INFORMATION
  Report Type: Spontaneous
  Country: DE (occurrence: DE)
  Receive Date: 20141021
  Receipt Date: 20150902
  Transmission Date: 20151125
  Serious: No
  Sender: FDA-Public Use
  Company Number: MERZ NORTH AMERICA, INC.-14MRZ-00375

PATIENT
  Age: 35 Year
  Sex: Male
  Weight: 91 kg

DRUGS (3)
  1. KATADOLON MALEATE [Concomitant]
     Indication: THERAPEUTIC PROCEDURE
     Dosage: NOT REPORTED
     Dates: start: 20140916, end: 20140916
  2. XEOMIN [Suspect]
     Active Substance: INCOBOTULINUMTOXINA
     Indication: TORTICOLLIS
     Route: 030
     Dates: start: 20141003, end: 20141003
  3. OCTOLIPEN [Concomitant]
     Indication: THERAPEUTIC PROCEDURE
     Dates: start: 20140916, end: 20140916

REACTIONS (1)
  - Syncope [Recovered/Resolved]

NARRATIVE: CASE EVENT DATE: 20141003
